FAERS Safety Report 25675763 (Version 1)
Quarter: 2025Q3

REPORT INFORMATION
  Report Type: Spontaneous
  Country: US (occurrence: None)
  Receive Date: 20250812
  Receipt Date: 20250812
  Transmission Date: 20251020
  Serious: Yes (Disabling)
  Sender: FDA-CTU
  Company Number: None

PATIENT
  Age: 72 Year
  Sex: Female
  Weight: 102.15 kg

DRUGS (12)
  1. LETROZOLE [Suspect]
     Active Substance: LETROZOLE
     Indication: Breast cancer
     Dosage: OTHER QUANTITY : 30 TABLET(S);?FREQUENCY : DAILY;?
     Route: 048
     Dates: start: 20250612, end: 20250627
  2. METOPROLOL SUCCINATE [Concomitant]
     Active Substance: METOPROLOL SUCCINATE
  3. UNSPECIFIED INGREDIENT [Concomitant]
     Active Substance: UNSPECIFIED INGREDIENT
  4. VALSARTAN [Concomitant]
     Active Substance: VALSARTAN
  5. ATORVASTATIN [Concomitant]
     Active Substance: ATORVASTATIN
  6. NAPROXEN SODIUM [Concomitant]
     Active Substance: NAPROXEN SODIUM
  7. AMOXICILLIN [Concomitant]
     Active Substance: AMOXICILLIN
  8. LETROZOLE [Concomitant]
     Active Substance: LETROZOLE
  9. ADVIL [Concomitant]
     Active Substance: IBUPROFEN
  10. Women^s Daily Multivitamin [Concomitant]
  11. Vitamin D3 supplement [Concomitant]
  12. VITAMIN B12 [Concomitant]
     Active Substance: CYANOCOBALAMIN

REACTIONS (25)
  - Hot flush [None]
  - Hyperhidrosis [None]
  - Insomnia [None]
  - Loss of personal independence in daily activities [None]
  - Headache [None]
  - Constipation [None]
  - Urinary incontinence [None]
  - Formication [None]
  - Dehydration [None]
  - Plantar fasciitis [None]
  - Arthralgia [None]
  - Gait disturbance [None]
  - Joint stiffness [None]
  - Arthralgia [None]
  - Apathy [None]
  - Disturbance in attention [None]
  - Irritability [None]
  - Flat affect [None]
  - Hypoaesthesia [None]
  - Contraindicated product administered [None]
  - Antisocial behaviour [None]
  - Stress cardiomyopathy [None]
  - Heart rate irregular [None]
  - Menopausal symptoms [None]
  - Disease complication [None]

NARRATIVE: CASE EVENT DATE: 20250612
